FAERS Safety Report 8005373-9 (Version None)
Quarter: 2011Q4

REPORT INFORMATION
  Report Type: 
  Country: None (occurrence: None)
  Receive Date: 20111223
  Receipt Date: 20111215
  Transmission Date: 20120403
  Serious: Yes (Other)
  Sender: FDA-Public Use
  Company Number: AU-ROCHE-1024192

PATIENT
  Sex: Female

DRUGS (3)
  1. ANTISEPTICS [Suspect]
     Indication: PRODUCT USED FOR UNKNOWN INDICATION
  2. LUCENTIS [Suspect]
     Route: 050
     Dates: start: 20111128
  3. LUCENTIS [Suspect]
     Indication: AGE-RELATED MACULAR DEGENERATION
     Route: 050

REACTIONS (5)
  - VISION BLURRED [None]
  - AGE-RELATED MACULAR DEGENERATION [None]
  - POSTERIOR CAPSULE OPACIFICATION [None]
  - EYE INJURY [None]
  - EYE PAIN [None]
